FAERS Safety Report 4682081-3 (Version None)
Quarter: 2005Q2

REPORT INFORMATION
  Report Type: 
  Country: None (occurrence: None)
  Receive Date: 20050602
  Receipt Date: 20050519
  Transmission Date: 20051028
  Serious: Yes (Death, Hospitalization)
  Sender: FDA-Public Use
  Company Number: FABR-11000

PATIENT
  Age: 51 Year
  Sex: Male
  Weight: 65 kg

DRUGS (3)
  1. FABRAZYME [Suspect]
     Indication: FABRY'S DISEASE
     Dosage: 70 MG Q2WKS IV
     Route: 042
     Dates: start: 20040121, end: 20050120
  2. FUROSEMIDE [Concomitant]
  3. CANDESARTAN CILEXETIL [Concomitant]

REACTIONS (7)
  - BRADYCARDIA [None]
  - CHEST DISCOMFORT [None]
  - DISEASE PROGRESSION [None]
  - FABRY'S DISEASE [None]
  - MIGRATION OF IMPLANT [None]
  - VENTRICULAR FIBRILLATION [None]
  - VENTRICULAR TACHYCARDIA [None]
